FAERS Safety Report 6033376-2 (Version None)
Quarter: 2009Q1

REPORT INFORMATION
  Report Type: 
  Country: None (occurrence: None)
  Receive Date: 20090109
  Receipt Date: 20090108
  Transmission Date: 20090719
  Serious: Yes (Hospitalization)
  Sender: FDA-Public Use
  Company Number: DE-ABBOTT-09P-062-0495518-00

PATIENT
  Sex: Male
  Weight: 86 kg

DRUGS (5)
  1. KALETRA [Suspect]
     Indication: HIV INFECTION
     Route: 048
     Dates: start: 20070726
  2. ABACAVIR SULFATE/LAMIVUDINE [Concomitant]
     Indication: HIV INFECTION
     Route: 048
     Dates: start: 20070921
  3. PENTACARINAT [Concomitant]
     Indication: PROPHYLAXIS
     Route: 055
     Dates: start: 20070806
  4. PENTACARINAT [Concomitant]
     Indication: PNEUMOCYSTIS JIROVECI PNEUMONIA
  5. MYAMBUTOL [Concomitant]
     Indication: MYCOBACTERIUM AVIUM COMPLEX INFECTION
     Dosage: 1200 MG DAILY DOSE
     Route: 048
     Dates: start: 20071015

REACTIONS (2)
  - ANOGENITAL WARTS [None]
  - ANORECTAL OPERATION [None]
